FAERS Safety Report 24729301 (Version 1)
Quarter: 2024Q4

REPORT INFORMATION
  Report Type: Spontaneous
  Country: DE (occurrence: DE)
  Receive Date: 20241213
  Receipt Date: 20241213
  Transmission Date: 20250115
  Serious: Yes (Hospitalization)
  Sender: ROCHE
  Company Number: None

PATIENT
  Age: 63 Year
  Sex: Male
  Weight: 97 kg

DRUGS (9)
  1. COTELLIC [Suspect]
     Active Substance: COBIMETINIB
     Indication: Histiocytosis
     Dosage: 3-0-0?PAUSED FOR 5 DAYS FROM OCTOBER 9TH, 2024?REINITIATED OCTOBER 14, 2024
     Route: 065
     Dates: start: 20241001, end: 20241014
  2. JANUVIA [Concomitant]
     Active Substance: SITAGLIPTIN PHOSPHATE
     Indication: Type 2 diabetes mellitus
     Dosage: 1-0-0
     Route: 065
  3. Torasemid 20mg [Concomitant]
     Indication: Hypertension
     Dosage: 1-0-0
     Route: 065
  4. Esomeprazol 20mg [Concomitant]
     Indication: Gastric haemorrhage
     Dosage: 1-0-0
     Route: 065
  5. LEVETIRACETAM [Concomitant]
     Active Substance: LEVETIRACETAM
     Indication: Seizure prophylaxis
     Dosage: 0.5-0-0.5
     Route: 065
  6. Lacosamid 200mg [Concomitant]
     Indication: Seizure prophylaxis
     Dosage: 0.5-0-0.5
     Route: 065
  7. XGEVA [Concomitant]
     Active Substance: DENOSUMAB
     Indication: Metastatic bone disease prophylaxis
     Dosage: Q28D
     Route: 065
  8. Ideos 500mg/400I.E [Concomitant]
     Indication: Drug therapy
     Dosage: 2-0-2
     Route: 065
  9. VITAMIN B COMPLEX NOS [Concomitant]
     Active Substance: CYANOCOBALAMIN\PYRIDOXINE HYDROCHLORIDE\RIBOFLAVIN\SODIUM PANTOTHENATE\THIAMINE HYDROCHLORIDE\VITAMI
     Indication: Alcohol abuse
     Dosage: 1-1-1
     Route: 065

REACTIONS (3)
  - Blood creatine phosphokinase increased [Not Recovered/Not Resolved]
  - Rhabdomyolysis [Not Recovered/Not Resolved]
  - Off label use [Unknown]

NARRATIVE: CASE EVENT DATE: 20241001
